FAERS Safety Report 9958365 (Version 2)
Quarter: 2014Q1

REPORT INFORMATION
  Report Type: Report from Study
  Country: US (occurrence: US)
  Receive Date: 20140305
  Receipt Date: 20140327
  Transmission Date: 20141002
  Serious: Yes (Other)
  Sender: FDA-Public Use
  Company Number: US-ROCHE-1351315

PATIENT
  Sex: Female

DRUGS (4)
  1. LUCENTIS [Suspect]
     Indication: DIABETIC RETINOPATHY
     Route: 050
     Dates: start: 20130220
  2. LUCENTIS [Suspect]
     Indication: DIABETIC RETINAL OEDEMA
  3. AVASTIN [Suspect]
     Indication: DIABETIC RETINOPATHY
     Route: 050
     Dates: start: 20121220, end: 20121220
  4. AVASTIN [Suspect]
     Indication: DIABETIC RETINAL OEDEMA

REACTIONS (5)
  - Eye pruritus [Unknown]
  - Vision blurred [Unknown]
  - Diplopia [Unknown]
  - Vitreous floaters [Unknown]
  - Off label use [Unknown]
